FAERS Safety Report 25336311 (Version 1)
Quarter: 2025Q2

REPORT INFORMATION
  Report Type: Spontaneous
  Country: US (occurrence: None)
  Receive Date: 20250519
  Receipt Date: 20250519
  Transmission Date: 20250716
  Serious: Yes (Hospitalization)
  Sender: FDA-CTU
  Company Number: None

PATIENT
  Sex: Female

DRUGS (10)
  1. AMBRISENTAN [Suspect]
     Active Substance: AMBRISENTAN
     Indication: Pulmonary arterial hypertension
     Dosage: TAKE 1 TABLET BY MOUTH ONCE DAILY
     Route: 048
     Dates: start: 20240424
  2. ALBUTEROL AER HFA [Concomitant]
  3. BIOTIN [Concomitant]
     Active Substance: BIOTIN
  4. COENZYME Q10 [Concomitant]
     Active Substance: DIETARY SUPPLEMENT\UBIDECARENONE
  5. ELIOUIS [Concomitant]
  6. MELATONIN [Concomitant]
     Active Substance: MELATONIN
  7. MULTIVITAMIN TAB ADLT 50+ [Concomitant]
  8. OMEPRAZOLE [Concomitant]
     Active Substance: OMEPRAZOLE
  9. ROSUVASTATIN [Concomitant]
     Active Substance: ROSUVASTATIN
  10. SILDENAFIL [Concomitant]
     Active Substance: SILDENAFIL

REACTIONS (4)
  - Pneumonia [None]
  - Pneumothorax [None]
  - Muscle spasms [None]
  - Rash [None]
